FAERS Safety Report 10462067 (Version 2)
Quarter: 2014Q3

REPORT INFORMATION
  Report Type: Spontaneous
  Country: US (occurrence: US)
  Receive Date: 20140918
  Receipt Date: 20140918
  Transmission Date: 20150326
  Serious: No
  Sender: FDA-Public Use
  Company Number: US-ALLERGAN-1402048US

PATIENT
  Age: 74 Year
  Sex: Female
  Weight: 66.67 kg

DRUGS (2)
  1. VANIQA [Suspect]
     Active Substance: EFLORNITHINE HYDROCHLORIDE
     Dosage: UNK
     Dates: start: 2011, end: 2013
  2. VANIQA [Suspect]
     Active Substance: EFLORNITHINE HYDROCHLORIDE
     Indication: DEPILATION
     Dosage: AS PRESCRIBED 8 HOURS APART
     Dates: start: 20110621

REACTIONS (2)
  - Hair texture abnormal [Unknown]
  - Drug ineffective [Unknown]
